FAERS Safety Report 7991725-X (Version None)
Quarter: 2011Q4

REPORT INFORMATION
  Report Type: 
  Country: None (occurrence: None)
  Receive Date: 20111219
  Receipt Date: 20111213
  Transmission Date: 20120403
  Serious: Yes (Hospitalization)
  Sender: FDA-Public Use
  Company Number: DE-ABBOTT-11P-062-0882868-00

PATIENT
  Sex: Female
  Weight: 72 kg

DRUGS (2)
  1. HUMIRA [Suspect]
     Indication: CROHN'S DISEASE
     Route: 058
     Dates: start: 20110101, end: 20111025
  2. HUMIRA [Suspect]

REACTIONS (5)
  - SUBILEUS [None]
  - INTESTINAL STENOSIS [None]
  - GASTROINTESTINAL INFLAMMATION [None]
  - ASCITES [None]
  - INTESTINAL DILATATION [None]
